FAERS Safety Report 5367826-1 (Version None)
Quarter: 2007Q2

REPORT INFORMATION
  Report Type: 
  Country: None (occurrence: None)
  Receive Date: 20070622
  Receipt Date: 20070613
  Transmission Date: 20071010
  Serious: Yes (Other)
  Sender: FDA-Public Use
  Company Number: JP-PFIZER INC-2006134147

PATIENT
  Sex: Female

DRUGS (6)
  1. CABASER [Suspect]
     Indication: PARKINSON'S DISEASE
     Dosage: DAILY DOSE:4MG
     Route: 048
     Dates: start: 20020822, end: 20061122
  2. MADOPAR [Concomitant]
     Route: 048
  3. SYMMETREL [Concomitant]
     Route: 048
     Dates: start: 19990929
  4. SELEGILINE HYDROCHLORIDE [Concomitant]
     Route: 048
     Dates: start: 20000629
  5. LIPITOR [Concomitant]
     Route: 048
     Dates: start: 20010816
  6. PERMAX [Concomitant]
     Route: 048
     Dates: start: 20060525

REACTIONS (3)
  - CARDIAC VALVE DISEASE [None]
  - DYSPNOEA [None]
  - HYPERTENSION [None]
